FAERS Safety Report 19460651 (Version 1)
Quarter: 2021Q2

REPORT INFORMATION
  Report Type: Report from Study
  Country: None (occurrence: CA)
  Receive Date: 20210625
  Receipt Date: 20210625
  Transmission Date: 20210717
  Serious: Yes (Other)
  Sender: FDA-Public Use
  Company Number: CA-ABBVIE-20K-028-3467503-00

PATIENT
  Sex: Male

DRUGS (1)
  1. HUMIRA [Suspect]
     Active Substance: ADALIMUMAB
     Indication: ANKYLOSING SPONDYLITIS
     Route: 058
     Dates: start: 20100309

REACTIONS (6)
  - Back injury [Unknown]
  - Intervertebral disc protrusion [Not Recovered/Not Resolved]
  - Post-traumatic pain [Unknown]
  - Pain [Not Recovered/Not Resolved]
  - Injury [Unknown]
  - Spinal fracture [Unknown]
